FAERS Safety Report 21237087 (Version 3)
Quarter: 2025Q3

REPORT INFORMATION
  Report Type: Report from Study
  Country: CA (occurrence: CA)
  Receive Date: 20220822
  Receipt Date: 20250717
  Transmission Date: 20251021
  Serious: Yes (Other)
  Sender: TAKEDA
  Company Number: CA-TAKEDA-2022TUS057128

PATIENT
  Sex: Male

DRUGS (12)
  1. VEDOLIZUMAB [Suspect]
     Active Substance: VEDOLIZUMAB
     Indication: Colitis ulcerative
  2. VEDOLIZUMAB [Suspect]
     Active Substance: VEDOLIZUMAB
  3. VEDOLIZUMAB [Suspect]
     Active Substance: VEDOLIZUMAB
  4. PREDNISONE [Concomitant]
     Active Substance: PREDNISONE
  5. PENTASA [Concomitant]
     Active Substance: MESALAMINE
     Dosage: 4 GRAM, QD
     Dates: start: 202101
  6. PENTASA [Concomitant]
     Active Substance: MESALAMINE
     Dosage: UNK UNK, 1/WEEK
     Dates: start: 20211215
  7. SERTRALINE [Concomitant]
     Active Substance: SERTRALINE HYDROCHLORIDE
  8. BUPROPION [Concomitant]
     Active Substance: BUPROPION
  9. CLONAZEPAM [Concomitant]
     Active Substance: CLONAZEPAM
  10. ROSUVASTATIN [Concomitant]
     Active Substance: ROSUVASTATIN
  11. REXULTI [Concomitant]
     Active Substance: BREXPIPRAZOLE
  12. EZETIMIBE [Concomitant]
     Active Substance: EZETIMIBE

REACTIONS (7)
  - Ocular hypertension [Unknown]
  - Haematochezia [Unknown]
  - Rectal haemorrhage [Unknown]
  - Malaise [Unknown]
  - Frequent bowel movements [Unknown]
  - Abdominal tenderness [Unknown]
  - Therapeutic reaction time decreased [Unknown]
